FAERS Safety Report 7790582-4 (Version None)
Quarter: 2011Q3

REPORT INFORMATION
  Report Type: 
  Country: None (occurrence: None)
  Receive Date: 20110930
  Receipt Date: 20110927
  Transmission Date: 20111222
  Serious: Yes (Death, Hospitalization, Other)
  Sender: FDA-Public Use
  Company Number: PHHY2011GB84016

PATIENT
  Age: 24 Year
  Sex: Male

DRUGS (5)
  1. ACETAMINOPHEN [Suspect]
     Dosage: 50 G, UNK
  2. FERROUS SULFATE TAB [Suspect]
     Dosage: UNK UKN, UNK
  3. ACETYLSALICYLIC ACID SRT [Suspect]
     Dosage: UNK UKN, UNK
  4. KETAMINE HCL [Suspect]
     Dosage: UNK UKN, UNK
  5. IBUPROFEN [Suspect]
     Dosage: UNK UKN, UNK

REACTIONS (7)
  - MULTIPLE DRUG OVERDOSE [None]
  - SUICIDE ATTEMPT [None]
  - NEUROLOGICAL DECOMPENSATION [None]
  - TRANSPLANT REJECTION [None]
  - ACUTE HEPATIC FAILURE [None]
  - ASPERGILLOSIS [None]
  - BRAIN STEM SYNDROME [None]
